FAERS Safety Report 13608285 (Version 1)
Quarter: 2017Q2

REPORT INFORMATION
  Report Type: Spontaneous
  Country: US (occurrence: US)
  Receive Date: 20170602
  Receipt Date: 20170602
  Transmission Date: 20170830
  Serious: No
  Sender: FDA-Public Use
  Company Number: US-PERRIGO-17US002156

PATIENT
  Age: 87 Year
  Sex: Female
  Weight: 36.74 kg

DRUGS (1)
  1. PERMETHRIN. [Suspect]
     Active Substance: PERMETHRIN
     Indication: ACARODERMATITIS
     Dosage: APPROXIMATELY 30 G, TWICE IN 8 DAYS
     Route: 061
     Dates: start: 20170216, end: 20170223

REACTIONS (2)
  - Drug ineffective [Unknown]
  - Inappropriate schedule of drug administration [Recovered/Resolved]

NARRATIVE: CASE EVENT DATE: 20170216
